FAERS Safety Report 10229378 (Version 10)
Quarter: 2016Q4

REPORT INFORMATION
  Report Type: Report from Study
  Country: FI (occurrence: FI)
  Receive Date: 20140611
  Receipt Date: 20161114
  Transmission Date: 20170206
  Serious: Yes (Hospitalization, Disabling)
  Sender: FDA-Public Use
  Company Number: FI-ROCHE-1289264

PATIENT
  Age: 53 Year
  Sex: Female

DRUGS (37)
  1. TEMAZEPAM. [Concomitant]
     Active Substance: TEMAZEPAM
     Indication: INSOMNIA
     Route: 065
     Dates: start: 20130611, end: 20141201
  2. KEFEXIN [Concomitant]
     Active Substance: CEPHALEXIN
     Route: 065
     Dates: start: 20140618, end: 20140624
  3. FURESIS [Concomitant]
     Active Substance: FUROSEMIDE
     Dosage: 20-40MG
     Route: 065
     Dates: start: 20130627
  4. ARTELAC EYE DROPS [Concomitant]
     Dosage: DROPS WHEN NEEDED
     Route: 065
     Dates: start: 201310, end: 20131127
  5. METFOREM [Concomitant]
     Active Substance: METFORMIN HYDROCHLORIDE
     Route: 065
     Dates: start: 20160921
  6. ESOMEPRAZOLE [Concomitant]
     Active Substance: ESOMEPRAZOLE
     Route: 065
     Dates: start: 20131003, end: 20140601
  7. PREDNISOLON [Concomitant]
     Active Substance: PREDNISOLONE
     Dosage: 10-40MG
     Route: 065
     Dates: start: 20130627, end: 20130720
  8. HISTEC [Concomitant]
     Active Substance: CETIRIZINE HYDROCHLORIDE
     Route: 065
     Dates: start: 20150827, end: 20150827
  9. NOVORAPID [Concomitant]
     Active Substance: INSULIN ASPART
     Route: 065
     Dates: start: 20130711, end: 20131101
  10. NOVORAPID [Concomitant]
     Active Substance: INSULIN ASPART
     Dosage: 5 UNITS
     Route: 065
     Dates: start: 20160823
  11. PERTUZUMAB [Suspect]
     Active Substance: PERTUZUMAB
     Indication: HER-2 POSITIVE BREAST CANCER
     Dosage: LOADING DOSE
     Route: 042
     Dates: start: 20130711, end: 20130711
  12. PERTUZUMAB [Suspect]
     Active Substance: PERTUZUMAB
     Dosage: FOLLOWED BY THE MAINTAINANCE DOSE?ON 11/JUL/2013, LAST DOSE OF PERTUZUMAB PRIOR TO FIRST EPISODE OF
     Route: 042
     Dates: start: 20130801
  13. TRASTUZUMAB [Suspect]
     Active Substance: TRASTUZUMAB
     Indication: HER-2 POSITIVE BREAST CANCER
     Dosage: LOADING DOSE
     Route: 042
     Dates: start: 20130711, end: 20130711
  14. TRASTUZUMAB [Suspect]
     Active Substance: TRASTUZUMAB
     Dosage: FOLLOWED BY THE MAINTAINANCE DOSE.?ON 11/JUL/2013, LAST DOSE OF TRASTUZUMAB PRIOR TO FIRST EPISODE O
     Route: 042
     Dates: start: 20130801
  15. METFORMIN [Concomitant]
     Active Substance: METFORMIN HYDROCHLORIDE
     Route: 065
     Dates: start: 20130711, end: 20130912
  16. PANADOL (FINLAND) [Concomitant]
     Route: 048
     Dates: start: 20130711
  17. DEXAMETHASON [Concomitant]
     Active Substance: DEXAMETHASONE
     Dosage: 15 MG DURING 3 DAYS
     Route: 065
     Dates: start: 20130711, end: 20131027
  18. BEMETSON [Concomitant]
     Dosage: CEREME
     Route: 065
     Dates: start: 20141203, end: 20141216
  19. TEMAZEPAM. [Concomitant]
     Active Substance: TEMAZEPAM
     Route: 065
     Dates: start: 20140601, end: 20141201
  20. ATARAX [Concomitant]
     Active Substance: HYDROXYZINE\HYDROXYZINE HYDROCHLORIDE
     Dosage: HYDROCHLORIDE
     Route: 065
     Dates: start: 20130810, end: 20130810
  21. LOPERAMIDE [Concomitant]
     Active Substance: LOPERAMIDE
     Route: 065
     Dates: start: 20130622
  22. LITALGIN [Concomitant]
     Active Substance: PITOFENONE
     Route: 065
     Dates: start: 20150827
  23. VICTOZA [Concomitant]
     Active Substance: LIRAGLUTIDE
     Route: 065
     Dates: start: 20151231
  24. DALACIN [Concomitant]
     Active Substance: CLINDAMYCIN
     Dosage: 300MG X 2
     Route: 065
     Dates: start: 20160804, end: 20160810
  25. DOCETAXEL. [Suspect]
     Active Substance: DOCETAXEL
     Indication: HER-2 POSITIVE BREAST CANCER
     Dosage: ON 11/JUL/2013, LAST DOSE OF DOCETAXEL PRIOR TO FIRST EPISODE OF DIARRHEA?ON 01/AUG/2013, SHE RECEIV
     Route: 042
     Dates: start: 20130711, end: 20131025
  26. METOCLOPRAMIDE. [Concomitant]
     Active Substance: METOCLOPRAMIDE
     Route: 065
     Dates: start: 20131003
  27. TRIMOPAN (FINLAND) [Concomitant]
     Dosage: 160 MG X 2
     Route: 065
     Dates: start: 20150603, end: 20150605
  28. SOMAC [Concomitant]
     Active Substance: PANTOPRAZOLE SODIUM
     Route: 065
     Dates: start: 20150827, end: 20150827
  29. CLINDAMYCIN. [Concomitant]
     Active Substance: CLINDAMYCIN
     Indication: SKIN INFECTION
     Route: 048
  30. KALCIPOS-D [Concomitant]
     Active Substance: CALCIUM CARBONATE\CHOLECALCIFEROL
     Indication: HYPOCALCAEMIA
     Route: 065
     Dates: start: 20130912, end: 20140601
  31. LANTUS [Concomitant]
     Active Substance: INSULIN GLARGINE
     Route: 065
     Dates: start: 20151119, end: 20160506
  32. OPAMOX [Concomitant]
     Active Substance: OXAZEPAM
     Indication: ANXIETY
     Route: 065
     Dates: start: 20130611
  33. OPAMOX [Concomitant]
     Active Substance: OXAZEPAM
     Route: 065
     Dates: start: 20130611
  34. JANUVIA [Concomitant]
     Active Substance: SITAGLIPTIN PHOSPHATE
     Route: 065
     Dates: start: 20131003, end: 20151231
  35. XGEVA [Concomitant]
     Active Substance: DENOSUMAB
     Indication: PROPHYLAXIS
     Route: 065
     Dates: start: 20130913
  36. NEULASTA [Concomitant]
     Active Substance: PEGFILGRASTIM
     Route: 058
     Dates: start: 20130712, end: 20130801
  37. GRANISETRON [Concomitant]
     Active Substance: GRANISETRON
     Route: 048
     Dates: start: 20130711

REACTIONS (6)
  - Abdominal pain upper [Recovered/Resolved]
  - Febrile neutropenia [Recovered/Resolved]
  - Pleural effusion [Recovered/Resolved]
  - Bronchitis [Recovered/Resolved]
  - Diarrhoea [Recovered/Resolved]
  - Dyspnoea [Recovered/Resolved]

NARRATIVE: CASE EVENT DATE: 20130716
